FAERS Safety Report 8872629 (Version 1)
Quarter: 2012Q4

REPORT INFORMATION
  Report Type: 
  Country: US (occurrence: US)
  Receive Date: 20121026
  Receipt Date: 20121026
  Transmission Date: 20130627
  Serious: No
  Sender: FDA-Public Use
  Company Number: US-AMGEN-USASP2012049459

PATIENT
  Sex: Female

DRUGS (9)
  1. ENBREL [Suspect]
     Indication: PRODUCT USED FOR UNKNOWN INDICATION
     Dosage: 50 mg, qwk
     Route: 058
  2. SIMVASTATIN [Concomitant]
     Dosage: 10 mg, UNK
  3. LANTUS [Concomitant]
     Dosage: 100/ml
  4. NOVOLOG [Concomitant]
  5. INSULIN [Concomitant]
     Dosage: FlexPen
  6. SYNTHROID [Concomitant]
     Dosage: 112 mcg
  7. VITAMIN D /00107901/ [Concomitant]
     Dosage: 1000 unit
  8. MOTRIN [Concomitant]
     Dosage: 400 mg, UNK
  9. ZYRTEC [Concomitant]
     Dosage: 10 mg, UNK

REACTIONS (2)
  - Influenza [Unknown]
  - Nasopharyngitis [Unknown]
